FAERS Safety Report 14355308 (Version 1)
Quarter: 2018Q1

REPORT INFORMATION
  Report Type: Spontaneous
  Country: US (occurrence: US)
  Receive Date: 20180104
  Receipt Date: 20180104
  Transmission Date: 20180509
  Serious: Yes (Life-Threatening, Hospitalization, Disabling)
  Sender: FDA-Public Use
  Company Number: None

PATIENT
  Sex: Female
  Weight: 57.6 kg

DRUGS (2)
  1. LORAZAPAM [Suspect]
     Active Substance: LORAZEPAM
     Indication: GENERALISED ANXIETY DISORDER
     Dosage: ?          QUANTITY:1 TABLET(S);?
     Route: 048
  2. LORAZAPAM [Suspect]
     Active Substance: LORAZEPAM
     Indication: PERINATAL DEPRESSION
     Dosage: ?          QUANTITY:1 TABLET(S);?
     Route: 048

REACTIONS (15)
  - Fear [None]
  - Head discomfort [None]
  - Agoraphobia [None]
  - Nerve injury [None]
  - Alopecia [None]
  - Vibratory sense increased [None]
  - Memory impairment [None]
  - Inability to afford medication [None]
  - Abdominal pain upper [None]
  - Nightmare [None]
  - Head titubation [None]
  - Social anxiety disorder [None]
  - Post-traumatic stress disorder [None]
  - Nausea [None]
  - Tremor [None]

NARRATIVE: CASE EVENT DATE: 20070305
